FAERS Safety Report 7365078-4 (Version None)
Quarter: 2011Q1

REPORT INFORMATION
  Report Type: 
  Country: None (occurrence: None)
  Receive Date: 20110321
  Receipt Date: 20110228
  Transmission Date: 20110831
  Serious: No
  Sender: FDA-Public Use
  Company Number: DE-US-EMD SERONO, INC.-7032730

PATIENT
  Sex: Male
  Weight: 35 kg

DRUGS (2)
  1. SAIZEN [Suspect]
     Dates: end: 20051204
  2. SAIZEN [Suspect]
     Indication: SMALL FOR DATES BABY
     Route: 058
     Dates: start: 20051205

REACTIONS (1)
  - OSTEOCHONDROSIS [None]
